FAERS Safety Report 4746823-0 (Version None)
Quarter: 2005Q3

REPORT INFORMATION
  Report Type: 
  Country: None (occurrence: None)
  Receive Date: 20050817
  Receipt Date: 20050114
  Transmission Date: 20060218
  Serious: Yes (Death, Other)
  Sender: FDA-Public Use
  Company Number: US-MERCK-0501USA02762

PATIENT
  Age: 20 Year
  Sex: Male

DRUGS (4)
  1. ELSPAR [Suspect]
     Indication: ACUTE LEUKAEMIA
     Route: 065
  2. ARA-C [Concomitant]
     Route: 065
  3. METHOTREXATE [Concomitant]
     Route: 065
  4. LEUCOVORIN CALCIUM [Concomitant]
     Route: 065

REACTIONS (7)
  - DELIRIUM [None]
  - DEMENTIA [None]
  - HYPOXIA [None]
  - MUCOSAL INFLAMMATION [None]
  - PNEUMONIA CYTOMEGALOVIRAL [None]
  - PNEUMONIA HERPES VIRAL [None]
  - SYSTEMIC MYCOSIS [None]
